FAERS Safety Report 16906494 (Version 1)
Quarter: 2019Q4

REPORT INFORMATION
  Report Type: Spontaneous
  Country: US (occurrence: US)
  Receive Date: 20191011
  Receipt Date: 20191011
  Transmission Date: 20200122
  Serious: No
  Sender: FDA-Public Use
  Company Number: US-JNJFOC-20191011233

PATIENT
  Age: 79 Year
  Sex: Female

DRUGS (1)
  1. TYLENOL [Suspect]
     Active Substance: ACETAMINOPHEN
     Indication: BACK PAIN
     Dosage: 1-2 CAPLETS 2 CAPLETS TWICE DAILY FOR ABOUT A WEEK AND THEN ONE CAPLET THREE TIMES DAILY
     Route: 048
     Dates: start: 2019

REACTIONS (3)
  - Pruritus [Unknown]
  - Incorrect dose administered [Unknown]
  - Erythema [Unknown]

NARRATIVE: CASE EVENT DATE: 2019
